FAERS Safety Report 26196681 (Version 1)
Quarter: 2025Q4

REPORT INFORMATION
  Report Type: Spontaneous
  Country: US (occurrence: US)
  Receive Date: 20251224
  Receipt Date: 20251224
  Transmission Date: 20260118
  Serious: Yes (Other)
  Sender: AMPHASTAR
  Company Number: US-Amphastar Pharmaceuticals, Inc.-2190920

PATIENT
  Age: 40 Year
  Sex: Female
  Weight: 90.909 kg

DRUGS (1)
  1. ENOXAPARIN SODIUM [Suspect]
     Active Substance: ENOXAPARIN SODIUM

REACTIONS (1)
  - Injury associated with device [Unknown]
